FAERS Safety Report 10184193 (Version 1)
Quarter: 2014Q2

REPORT INFORMATION
  Report Type: Spontaneous
  Country: US (occurrence: US)
  Receive Date: 20140520
  Receipt Date: 20140520
  Transmission Date: 20141212
  Serious: No
  Sender: FDA-Public Use
  Company Number: US-009507513-1405USA007684

PATIENT
  Sex: Female

DRUGS (1)
  1. NASONEX [Suspect]
     Dosage: 50 MICROGRAM / 1 SPRAY IN EACH NOSTRIL EVERY OTHER DAY
     Route: 045
     Dates: start: 201204

REACTIONS (3)
  - Overdose [Unknown]
  - Product quality issue [Unknown]
  - No adverse event [Unknown]
